FAERS Safety Report 20876774 (Version 1)
Quarter: 2022Q2

REPORT INFORMATION
  Report Type: Spontaneous
  Country: US (occurrence: US)
  Receive Date: 20220526
  Receipt Date: 20220526
  Transmission Date: 20220721
  Serious: No
  Sender: FDA-Public Use
  Company Number: US-BRISTOL-MYERS SQUIBB COMPANY-2022-016003

PATIENT
  Age: 64 Year

DRUGS (1)
  1. NULOJIX [Suspect]
     Active Substance: BELATACEPT
     Indication: Heart transplant
     Dosage: DOSE : CANNOT PROVIDE;     FREQ : CANNOT PROVIDE

REACTIONS (1)
  - Intentional product use issue [Unknown]
